FAERS Safety Report 23491391 (Version 2)
Quarter: 2024Q1

REPORT INFORMATION
  Report Type: Spontaneous
  Country: US (occurrence: None)
  Receive Date: 20240207
  Receipt Date: 20240307
  Transmission Date: 20240410
  Serious: Yes (Death)
  Sender: FDA-Public Use
  Company Number: US-ROCHE-3504807

PATIENT
  Age: 74 Year
  Sex: Male
  Weight: 80.3 kg

DRUGS (7)
  1. TAMIFLU [Suspect]
     Active Substance: OSELTAMIVIR PHOSPHATE
     Indication: Product used for unknown indication
     Route: 065
     Dates: start: 20240109
  2. XOFLUZA [Suspect]
     Active Substance: BALOXAVIR MARBOXIL
     Indication: Product used for unknown indication
     Route: 065
     Dates: start: 20240111
  3. BISACODYL [Concomitant]
     Active Substance: BISACODYL
  4. FENTANYL [Concomitant]
     Active Substance: FENTANYL\FENTANYL CITRATE
  5. LORAZEPAM [Concomitant]
     Active Substance: LORAZEPAM
  6. MIDAZOLAM [Concomitant]
     Active Substance: MIDAZOLAM
  7. ONDANSETRON [Concomitant]
     Active Substance: ONDANSETRON

REACTIONS (2)
  - Haemophagocytic lymphohistiocytosis [Fatal]
  - Renal failure [Fatal]

NARRATIVE: CASE EVENT DATE: 20240115
